FAERS Safety Report 20812028 (Version 1)
Quarter: 2022Q2

REPORT INFORMATION
  Report Type: Report from Study
  Country: AU (occurrence: AU)
  Receive Date: 20220511
  Receipt Date: 20220511
  Transmission Date: 20220720
  Serious: Yes (Hospitalization)
  Sender: FDA-Public Use
  Company Number: AU-BRISTOL-MYERS SQUIBB COMPANY-2022-034415

PATIENT
  Age: 48 Year
  Sex: Female

DRUGS (2)
  1. NIVOLUMAB [Suspect]
     Active Substance: NIVOLUMAB
     Indication: Neoplasm
     Dosage: 69MG
     Route: 065
     Dates: end: 20220504
  2. IPILIMUMAB [Suspect]
     Active Substance: IPILIMUMAB
     Indication: Neoplasm
     Dosage: 206MG
     Route: 065
     Dates: end: 20220504

REACTIONS (1)
  - Non-cardiac chest pain [Not Recovered/Not Resolved]

NARRATIVE: CASE EVENT DATE: 20220504
